FAERS Safety Report 4596393-5 (Version None)
Quarter: 2005Q1

REPORT INFORMATION
  Report Type: 
  Country: None (occurrence: None)
  Receive Date: 20050228
  Receipt Date: 20050217
  Transmission Date: 20050727
  Serious: Yes (Hospitalization, Other)
  Sender: FDA-Public Use
  Company Number: 2005033423

PATIENT
  Age: 90 Year
  Sex: Female

DRUGS (3)
  1. LIPITOR [Suspect]
     Indication: HYPERCHOLESTEROLAEMIA
     Dosage: 10 MG (DAILY); ORAL
     Route: 048
     Dates: start: 20040401
  2. SARPOGRELATE HYDROCHLORIDE [Concomitant]
  3. LOSARTAN POTASSIUM [Concomitant]

REACTIONS (4)
  - BLOOD PRESSURE SYSTOLIC DECREASED [None]
  - BLOOD UREA INCREASED [None]
  - MOVEMENT DISORDER [None]
  - RHABDOMYOLYSIS [None]
